FAERS Safety Report 8132739-9 (Version None)
Quarter: 2012Q1

REPORT INFORMATION
  Report Type: 
  Country: None (occurrence: None)
  Receive Date: 20120207
  Receipt Date: 20120127
  Transmission Date: 20120608
  Serious: Yes (Disabling, Other)
  Sender: FDA-Public Use
  Company Number: AUR-APL-2012-00691

PATIENT
  Age: 85 Year
  Sex: Female
  Weight: 57 kg

DRUGS (15)
  1. BISOPROLOL FUMARATE [Concomitant]
  2. CLOTRIMAZOLE [Concomitant]
  3. DIGOXIN [Concomitant]
  4. LACTULOSE [Concomitant]
  5. LEVOTHYROXINE SODIUM [Concomitant]
  6. NICORANDIL (NICORANDIL) [Concomitant]
  7. ZAPAIN (PANADEINE CO) [Concomitant]
  8. IBANDRONIC ACID (IBANDRONIC ACID) [Concomitant]
  9. LANSOPRAZOLE [Concomitant]
  10. FUROSEMIDE [Concomitant]
  11. WARFARIN SODIUM [Concomitant]
  12. METFORMIN HCL [Suspect]
     Indication: TYPE 2 DIABETES MELLITUS
     Dosage: 2 DOSAGE FORMS (2 DOSAGE FORMS, 1 IN 1 D), ORAL
     Route: 048
  13. SPIRONOLACTONE [Concomitant]
  14. ISOSORBIDE MONONITRATE [Concomitant]
  15. LOSARTAN POTASSIUM [Concomitant]

REACTIONS (2)
  - SKIN ULCER [None]
  - CUTANEOUS VASCULITIS [None]
